FAERS Safety Report 25721444 (Version 1)
Quarter: 2025Q3

REPORT INFORMATION
  Report Type: Spontaneous
  Country: GT (occurrence: GT)
  Receive Date: 20250825
  Receipt Date: 20250825
  Transmission Date: 20251021
  Serious: Yes (Other)
  Sender: BAYER HEALTHCARE PHARMACEUTICALS INC.
  Company Number: GT-BAYER-2025A109334

PATIENT
  Age: 52 Year
  Sex: Female

DRUGS (1)
  1. FINERENONE [Suspect]
     Active Substance: FINERENONE
     Indication: Product used for unknown indication
     Dates: start: 20250815

REACTIONS (1)
  - Chronic allograft nephropathy [Recovering/Resolving]
